FAERS Safety Report 23353619 (Version 1)
Quarter: 2024Q1

REPORT INFORMATION
  Report Type: Other
  Country: US (occurrence: None)
  Receive Date: 20240101
  Receipt Date: 20240101
  Transmission Date: 20240409
  Serious: No
  Sender: FDA-Public Use
  Company Number: US-ROCHE-3483546

PATIENT
  Age: 45 Year
  Sex: Female

DRUGS (9)
  1. OCREVUS [Suspect]
     Active Substance: OCRELIZUMAB
     Indication: Relapsing multiple sclerosis
     Route: 042
     Dates: start: 20230503
  2. URECHOLINE [Concomitant]
     Active Substance: BETHANECHOL CHLORIDE
  3. AMPYRA [Concomitant]
     Active Substance: DALFAMPRIDINE
  4. BUSPAR [Concomitant]
     Active Substance: BUSPIRONE HYDROCHLORIDE
  5. FLOMAX [Concomitant]
     Active Substance: TAMSULOSIN HYDROCHLORIDE
  6. WELLBUTRIN [Concomitant]
     Active Substance: BUPROPION HYDROCHLORIDE
  7. ADDERALL [Concomitant]
     Active Substance: AMPHETAMINE ASPARTATE\AMPHETAMINE SULFATE\DEXTROAMPHETAMINE SACCHARATE\DEXTROAMPHETAMINE SULFATE
  8. XANAX [Concomitant]
     Active Substance: ALPRAZOLAM
  9. LIORESAL [Concomitant]
     Active Substance: BACLOFEN

REACTIONS (1)
  - COVID-19 [Recovered/Resolved]
